FAERS Safety Report 25183531 (Version 1)
Quarter: 2025Q2

REPORT INFORMATION
  Report Type: Spontaneous
  Country: US (occurrence: US)
  Receive Date: 20250410
  Receipt Date: 20250410
  Transmission Date: 20250716
  Serious: No
  Sender: ALEXION PHARMACEUTICALS
  Company Number: US-AstraZeneca-CH-00845270A

PATIENT
  Age: 57 Year

DRUGS (1)
  1. FASENRA [Suspect]
     Active Substance: BENRALIZUMAB
     Indication: Asthma
     Dosage: 30 MG/ML, Q8W

REACTIONS (4)
  - Injection site pain [Unknown]
  - Dry throat [Unknown]
  - Rhinorrhoea [Unknown]
  - Headache [Unknown]
